FAERS Safety Report 9537753 (Version 2)
Quarter: 2013Q3

REPORT INFORMATION
  Report Type: Spontaneous
  Country: BA (occurrence: BA)
  Receive Date: 20130919
  Receipt Date: 20130919
  Transmission Date: 20140515
  Serious: Yes (Hospitalization, Other)
  Sender: FDA-Public Use
  Company Number: BA-ABBVIE-13P-211-1048293-00

PATIENT
  Sex: Male

DRUGS (2)
  1. CHIROCAINE [Suspect]
     Indication: EPIDURAL ANAESTHESIA
     Dosage: 2 ML AT ONCE
     Route: 042
     Dates: start: 20130130, end: 20130130
  2. CHIROCAINE [Suspect]
     Indication: KNEE OPERATION

REACTIONS (4)
  - Headache [Recovered/Resolved]
  - Pyrexia [Recovered/Resolved]
  - Pyrexia [Recovered/Resolved]
  - Product contamination [Unknown]
